FAERS Safety Report 5709038-5 (Version None)
Quarter: 2008Q2

REPORT INFORMATION
  Report Type: 
  Country: None (occurrence: None)
  Receive Date: 20080416
  Receipt Date: 20080416
  Transmission Date: 20081010
  Serious: Yes (Hospitalization)
  Sender: FDA-Public Use
  Company Number: None

PATIENT
  Age: 37 Year
  Sex: Female
  Weight: 72 kg

DRUGS (7)
  1. LITHIUM CARBONATE [Suspect]
     Indication: BIPOLAR DISORDER
     Dosage: 450MG AM, 625 MG PM DAILY PO CHRONIC
     Route: 048
  2. OMEPRAZOLE [Concomitant]
  3. TEGRETOL [Concomitant]
  4. KLONOPIN [Concomitant]
  5. NEURONTIN [Concomitant]
  6. SYNTHROID [Concomitant]
  7. SEROQUEL [Concomitant]

REACTIONS (5)
  - DIALYSIS [None]
  - FLUID INTAKE REDUCED [None]
  - MENTAL STATUS CHANGES [None]
  - RENAL FAILURE ACUTE [None]
  - THERAPEUTIC AGENT TOXICITY [None]
